FAERS Safety Report 11201752 (Version 2)
Quarter: 2015Q3

REPORT INFORMATION
  Report Type: Spontaneous
  Country: US (occurrence: US)
  Receive Date: 20150619
  Receipt Date: 20150730
  Transmission Date: 20151125
  Serious: No
  Sender: FDA-Public Use
  Company Number: US-AMGEN-USASP2015058926

PATIENT
  Age: 82 Year
  Sex: Female
  Weight: 54.88 kg

DRUGS (1)
  1. PROLIA [Suspect]
     Active Substance: DENOSUMAB
     Indication: OSTEOPOROSIS POSTMENOPAUSAL
     Dosage: 60 MG, Q6MO
     Route: 058
     Dates: start: 201303, end: 201504

REACTIONS (6)
  - Tooth extraction [Unknown]
  - Oral pain [Unknown]
  - Procedural pain [Unknown]
  - Gingival pain [Unknown]
  - Secretion discharge [Unknown]
  - Oral disorder [Unknown]

NARRATIVE: CASE EVENT DATE: 201505
